FAERS Safety Report 7715649-8 (Version None)
Quarter: 2011Q3

REPORT INFORMATION
  Report Type: 
  Country: None (occurrence: None)
  Receive Date: 20110829
  Receipt Date: 20110817
  Transmission Date: 20111222
  Serious: Yes (Other)
  Sender: FDA-Public Use
  Company Number: US-ROCHE-778209

PATIENT
  Sex: Female
  Weight: 52.2 kg

DRUGS (4)
  1. ACCUTANE [Suspect]
     Indication: ACNE
     Route: 048
     Dates: start: 20011129, end: 20020503
  2. ORTHO TRI-CYCLEN [Concomitant]
  3. ACCUTANE [Suspect]
     Dosage: DOSE: 40 MG/20 MG
     Route: 048
     Dates: start: 20070611, end: 20071201
  4. AMNESTEEM [Suspect]
     Indication: ACNE
     Route: 048
     Dates: start: 20070622, end: 20071129

REACTIONS (10)
  - HEPATIC ENZYME INCREASED [None]
  - CHEILITIS [None]
  - LIP DRY [None]
  - STRESS [None]
  - IRRITABLE BOWEL SYNDROME [None]
  - ACNE [None]
  - INFLAMMATORY BOWEL DISEASE [None]
  - EPISTAXIS [None]
  - ARTHRALGIA [None]
  - COLITIS ULCERATIVE [None]
